FAERS Safety Report 6825107-0 (Version None)
Quarter: 2010Q3

REPORT INFORMATION
  Report Type: 
  Country: None (occurrence: None)
  Receive Date: 20100708
  Receipt Date: 20061229
  Transmission Date: 20110219
  Serious: Yes (Other)
  Sender: FDA-Public Use
  Company Number: US-PFIZER INC-2007001342

PATIENT
  Sex: Female

DRUGS (8)
  1. CHANTIX [Suspect]
     Indication: SMOKING CESSATION THERAPY
     Dates: start: 20061223
  2. ALPRAZOLAM [Concomitant]
  3. LORAZEPAM [Concomitant]
  4. VITAMINS [Concomitant]
  5. CALCIUM WITH VITAMIN D [Concomitant]
  6. PLAVIX [Concomitant]
  7. PROTONIX [Concomitant]
  8. ACETYLSALICYLIC ACID [Concomitant]

REACTIONS (4)
  - AGGRESSION [None]
  - DEPRESSION [None]
  - NERVOUSNESS [None]
  - TREMOR [None]
